FAERS Safety Report 5666713-9 (Version None)
Quarter: 2008Q1

REPORT INFORMATION
  Report Type: 
  Country: None (occurrence: None)
  Receive Date: 20080315
  Receipt Date: 20080114
  Transmission Date: 20080703
  Serious: No
  Sender: FDA-Public Use
  Company Number: US-ABBOTT-08P-163-0431976-00

PATIENT
  Sex: Female
  Weight: 56.75 kg

DRUGS (4)
  1. HUMIRA [Suspect]
     Indication: CROHN'S DISEASE
     Route: 058
     Dates: start: 20071004
  2. MESALAMINE [Concomitant]
     Indication: CROHN'S DISEASE
  3. VICODIN [Concomitant]
     Indication: PAIN
  4. PREDNISONE [Concomitant]
     Indication: CROHN'S DISEASE

REACTIONS (2)
  - FISTULA DISCHARGE [None]
  - GASTROINTESTINAL FISTULA [None]
